FAERS Safety Report 4958909-6 (Version None)
Quarter: 2006Q1

REPORT INFORMATION
  Report Type: 
  Country: None (occurrence: None)
  Receive Date: 20060324
  Receipt Date: 20060317
  Transmission Date: 20060701
  Serious: Yes (Disabling)
  Sender: FDA-Public Use
  Company Number: CHWYE212407DEC05

PATIENT
  Age: 56 Year
  Sex: Male

DRUGS (3)
  1. EFFEXOR [Suspect]
     Indication: DEPRESSION
     Dosage: SEE IMAGE
     Route: 048
     Dates: start: 20050401
  2. BETASERC (BETAHISTINE HYDROCHLORIDE) [Concomitant]
  3. PRAMIPEXOLE (PRAMIPEXOLE) [Concomitant]

REACTIONS (6)
  - CONDITION AGGRAVATED [None]
  - HEARING IMPAIRED [None]
  - IMPAIRED WORK ABILITY [None]
  - MUSCLE SPASMS [None]
  - OEDEMA MUCOSAL [None]
  - SINUS DISORDER [None]
